FAERS Safety Report 10246688 (Version 1)
Quarter: 2014Q2

REPORT INFORMATION
  Report Type: Spontaneous
  Country: GB (occurrence: GB)
  Receive Date: 20140619
  Receipt Date: 20140619
  Transmission Date: 20141212
  Serious: Yes (Congenital Anomaly)
  Sender: FDA-Public Use
  Company Number: GB-MYLANLABS-2014S1013697

PATIENT
  Sex: Female

DRUGS (4)
  1. LAMOTRIGINE [Suspect]
     Indication: EPILEPSY
     Route: 064
  2. PIRITON [Concomitant]
  3. VITAMIN K [Concomitant]
  4. FOLIC ACID [Concomitant]

REACTIONS (1)
  - Haemorrhage neonatal [Unknown]
